FAERS Safety Report 21094447 (Version 1)
Quarter: 2022Q3

REPORT INFORMATION
  Report Type: Spontaneous
  Country: IT (occurrence: IT)
  Receive Date: 20220718
  Receipt Date: 20220718
  Transmission Date: 20221027
  Serious: Yes (Hospitalization)
  Sender: FDA-Public Use
  Company Number: IT-MYLANLABS-2022M1079087

PATIENT
  Sex: Female

DRUGS (5)
  1. BISOPROLOL [Suspect]
     Active Substance: BISOPROLOL
     Indication: Angina unstable
     Dosage: UNK,INITIAL DOSAGE NOT STATED
     Route: 065
  2. BISOPROLOL [Suspect]
     Active Substance: BISOPROLOL
     Dosage: 5 MILLIGRAM, QD,TITRATED TO 5 MG A DAY
     Route: 065
  3. ISOSORBIDE MONONITRATE [Suspect]
     Active Substance: ISOSORBIDE MONONITRATE
     Indication: Angina unstable
     Dosage: INITIAL DOSAGE NOT STATED
     Route: 065
  4. ISOSORBIDE MONONITRATE [Suspect]
     Active Substance: ISOSORBIDE MONONITRATE
     Dosage: 80 MILLIGRAM, BID TITRATED TO 80 MG TWICE A DAY
     Route: 065
  5. RANOLAZINE [Suspect]
     Active Substance: RANOLAZINE
     Indication: Angina unstable
     Dosage: 375 MILLIGRAM, BID
     Route: 065

REACTIONS (1)
  - Drug ineffective [Unknown]
